FAERS Safety Report 15525699 (Version 7)
Quarter: 2020Q3

REPORT INFORMATION
  Report Type: Report from Study
  Country: FR (occurrence: FR)
  Receive Date: 20181018
  Receipt Date: 20190918
  Transmission Date: 20201105
  Serious: Yes (Life-Threatening, Hospitalization)
  Sender: FDA-Public Use
  Company Number: FR-ROCHE-2129155

PATIENT
  Age: 79 Year
  Sex: Female
  Weight: 72 kg

DRUGS (105)
  1. RITUXIMAB. [Suspect]
     Active Substance: RITUXIMAB
     Indication: DIFFUSE LARGE B-CELL LYMPHOMA
     Dosage: DATE OF MOST RECENT DOSE OF RITUXIMAB PRIOR TO FIRST OCCURRENCE OF DIGESTIVE HEMORRHAGE: 22/MAY/2018
     Route: 041
     Dates: start: 20180522
  2. PANTOPRAZOLE [Concomitant]
     Active Substance: PANTOPRAZOLE
     Route: 042
     Dates: start: 20180603, end: 20180719
  3. PREDNISONE. [Concomitant]
     Active Substance: PREDNISONE
     Route: 065
     Dates: start: 20180516, end: 20180517
  4. ECAZIDE [Concomitant]
     Active Substance: CAPTOPRIL\HYDROCHLOROTHIAZIDE
     Indication: HYPERTENSION
     Route: 048
     Dates: end: 20180603
  5. MORPHINE [Concomitant]
     Active Substance: MORPHINE
     Route: 042
     Dates: start: 20180606, end: 20180606
  6. VANCOMYCINE [VANCOMYCIN] [Concomitant]
     Active Substance: VANCOMYCIN
     Dosage: ANTI INFECTIVE
     Route: 042
     Dates: start: 20180914, end: 20180917
  7. CANCIDAS [Concomitant]
     Active Substance: CASPOFUNGIN ACETATE
     Dosage: INFECTION OF CANDIDA FEKIR
     Route: 042
     Dates: start: 20180604, end: 20180617
  8. RINGERS LACTATE [Concomitant]
     Active Substance: CALCIUM CHLORIDE\POTASSIUM CHLORIDE\SODIUM LACTATE
     Dosage: IONIC SOLUTION
     Route: 042
     Dates: start: 20180608, end: 20180608
  9. BISOPROLOL [Concomitant]
     Active Substance: BISOPROLOL
     Route: 048
     Dates: end: 20180522
  10. AUGMENTIN [Concomitant]
     Active Substance: AMOXICILLIN\CLAVULANATE POTASSIUM
     Dosage: ANTI INFECTIVES
     Route: 065
     Dates: end: 20180528
  11. ACUPAN [Concomitant]
     Active Substance: NEFOPAM HYDROCHLORIDE
     Route: 048
     Dates: start: 20180620, end: 20180914
  12. ZYLORIC [Concomitant]
     Active Substance: ALLOPURINOL
     Indication: HYPERURICAEMIA
     Route: 048
     Dates: end: 20180517
  13. ESIDREX [Concomitant]
     Active Substance: HYDROCHLOROTHIAZIDE
     Indication: HYPERTENSION
     Route: 048
     Dates: start: 20180518, end: 20180520
  14. TAHOR [Concomitant]
     Active Substance: ATORVASTATIN CALCIUM
     Indication: DYSLIPIDAEMIA
     Route: 048
     Dates: start: 20180517, end: 20180711
  15. SPECIAFOLDINE [Concomitant]
     Active Substance: FOLIC ACID
     Dosage: ANTI HEMOLYTIC ANEMIA
     Route: 048
     Dates: end: 20180522
  16. IMODIUM [Concomitant]
     Active Substance: LOPERAMIDE HYDROCHLORIDE
     Route: 048
     Dates: start: 20180703
  17. FUCIDINE [FUSIDIC ACID] [Concomitant]
     Dosage: ANTI INFECTIVE
     Route: 048
     Dates: end: 20180515
  18. LASILIX [FUROSEMIDE] [Concomitant]
     Active Substance: FUROSEMIDE
     Indication: OEDEMA
     Route: 042
     Dates: start: 20180531, end: 20180531
  19. LASILIX [FUROSEMIDE] [Concomitant]
     Active Substance: FUROSEMIDE
     Route: 048
     Dates: start: 20180604, end: 20180605
  20. POTASSIUM CHLORIDE. [Concomitant]
     Active Substance: POTASSIUM CHLORIDE
     Indication: HYPOKALAEMIA
     Route: 042
     Dates: start: 20180608, end: 20180613
  21. BISOPROLOL [Concomitant]
     Active Substance: BISOPROLOL
     Route: 048
     Dates: start: 20180614, end: 20180622
  22. ZOPHREN [ONDANSETRON] [Concomitant]
     Active Substance: ONDANSETRON
     Dosage: PREMEDICATION
     Route: 048
     Dates: start: 20180530, end: 20180921
  23. AMIKACINE [AMIKACIN] [Concomitant]
     Active Substance: AMIKACIN
     Dosage: ANTI INFECTIVE
     Route: 042
     Dates: start: 20180728, end: 20180730
  24. FASTURTEC [Concomitant]
     Active Substance: RASBURICASE
     Dosage: ANTI LYSIS SYNDROM
     Route: 042
     Dates: start: 20180521, end: 20180521
  25. ZYLORIC [Concomitant]
     Active Substance: ALLOPURINOL
     Route: 048
     Dates: start: 20180727, end: 20180806
  26. ZARZIO [Concomitant]
     Active Substance: FILGRASTIM
     Dosage: ANTI NEUTROPENIA
     Route: 058
     Dates: start: 20180731, end: 20180805
  27. PENTACARINAT [Concomitant]
     Active Substance: PENTAMIDINE ISETHIONATE
     Route: 050
     Dates: start: 20180923
  28. PANTOPRAZOLE [Concomitant]
     Active Substance: PANTOPRAZOLE
     Indication: GASTRIC ULCER
     Route: 065
     Dates: start: 20180514
  29. CRESTOR [Concomitant]
     Active Substance: ROSUVASTATIN CALCIUM
     Indication: DYSLIPIDAEMIA
     Route: 048
     Dates: end: 20180516
  30. PREDNISONE. [Concomitant]
     Active Substance: PREDNISONE
     Indication: LYMPHOMA
     Route: 048
     Dates: start: 20180516, end: 20180517
  31. LASILIX [FUROSEMIDE] [Concomitant]
     Active Substance: FUROSEMIDE
     Indication: HYPERTENSION
     Route: 042
     Dates: start: 20180605, end: 20180609
  32. MORPHINE [Concomitant]
     Active Substance: MORPHINE
     Indication: PAIN
     Route: 042
     Dates: start: 20180531, end: 20180531
  33. TIENAM [Concomitant]
     Active Substance: CILASTATIN SODIUM\IMIPENEM
     Dosage: 500/500 MG
     Route: 042
     Dates: start: 20180625, end: 20180628
  34. VANCOMYCINE [VANCOMYCIN] [Concomitant]
     Active Substance: VANCOMYCIN
     Dosage: ANTI INFECTIVE
     Route: 042
     Dates: start: 20180603, end: 20180615
  35. KAYEXALATE [Concomitant]
     Active Substance: SODIUM POLYSTYRENE SULFONATE
     Indication: HYPERKALAEMIA
     Route: 048
     Dates: start: 20180529, end: 20180529
  36. RACECADOTRIL [Concomitant]
     Active Substance: RACECADOTRIL
     Route: 048
     Dates: start: 20180626
  37. DIOSMECTITE [Concomitant]
     Active Substance: MONTMORILLONITE
     Dosage: ANTI DIARRHEA
     Route: 048
     Dates: start: 20180626, end: 20180703
  38. ZYLORIC [Concomitant]
     Active Substance: ALLOPURINOL
     Route: 048
     Dates: start: 20180518, end: 20180711
  39. ZARZIO [Concomitant]
     Active Substance: FILGRASTIM
     Dosage: ANTI NEUTROPENIA
     Route: 042
     Dates: start: 20180605, end: 20180612
  40. WELLVONE [Concomitant]
     Active Substance: ATOVAQUONE
     Route: 048
     Dates: start: 20180831, end: 20180920
  41. EXACYL [Concomitant]
     Active Substance: TRANEXAMIC ACID
     Indication: HAEMORRHAGE
     Route: 042
     Dates: start: 20180806, end: 20180806
  42. ECAZIDE [Concomitant]
     Active Substance: CAPTOPRIL\HYDROCHLOROTHIAZIDE
     Route: 048
     Dates: start: 20180518, end: 20180520
  43. LASILIX [FUROSEMIDE] [Concomitant]
     Active Substance: FUROSEMIDE
     Route: 048
     Dates: end: 20180522
  44. SOLUTIONS FOR PARENTERAL NUTRITION [Concomitant]
     Active Substance: AMINO ACIDS\DEXTROSE\ELECTROLYTES NOS
     Dosage: IMPOSSIBILITY OF ORAL NUTRITION
     Route: 042
     Dates: start: 20180609, end: 20180626
  45. INNOHEP [Concomitant]
     Active Substance: TINZAPARIN SODIUM
     Route: 065
     Dates: start: 20180514
  46. BISOPROLOL [Concomitant]
     Active Substance: BISOPROLOL
     Route: 048
     Dates: start: 20180625
  47. LOPERAMIDE [Concomitant]
     Active Substance: LOPERAMIDE
     Dosage: ANTI DIARRHEA
     Route: 048
     Dates: start: 20180703
  48. UROKINASE [Concomitant]
     Active Substance: UROKINASE
     Indication: THROMBOLYSIS
     Route: 042
     Dates: start: 20180920, end: 20180920
  49. DIFFU K [Concomitant]
     Active Substance: POTASSIUM CHLORIDE
     Indication: HYPOKALAEMIA
     Route: 048
     Dates: start: 20181025, end: 20181102
  50. PANTOPRAZOLE [Concomitant]
     Active Substance: PANTOPRAZOLE
     Route: 048
     Dates: start: 20180522, end: 20180523
  51. PANTOPRAZOLE [Concomitant]
     Active Substance: PANTOPRAZOLE
     Route: 042
     Dates: start: 20180806, end: 20180806
  52. DEXERYL [GLYCEROL;PARAFFIN, LIQUID;WHITE SOFT PARAFFIN] [Concomitant]
     Active Substance: GLYCERIN\MINERAL OIL\PETROLATUM
     Indication: DRY SKIN
     Route: 058
     Dates: start: 20180515, end: 20180521
  53. TRAMADOL. [Concomitant]
     Active Substance: TRAMADOL
     Route: 048
     Dates: start: 20180717, end: 20180806
  54. CANCIDAS [Concomitant]
     Active Substance: CASPOFUNGIN ACETATE
     Dosage: ANTI INFECTIVE
     Route: 042
     Dates: start: 20180824, end: 20180829
  55. INNOHEP [Concomitant]
     Active Substance: TINZAPARIN SODIUM
     Route: 058
     Dates: start: 20180529, end: 20180531
  56. NOVORAPID [Concomitant]
     Active Substance: INSULIN ASPART
     Indication: HYPERGLYCAEMIA
     Route: 058
     Dates: start: 20180530, end: 20180530
  57. HEPARINE SODIQUE [Concomitant]
     Active Substance: HEPARIN SODIUM
     Dosage: ANTI THROMBOSIS
     Route: 042
     Dates: start: 20180603, end: 20180607
  58. FOLINATE DE CALCIUM [Concomitant]
     Active Substance: LEUCOVORIN CALCIUM
     Dosage: ANTI VITAMINE B6 DEPLETION
     Route: 048
     Dates: start: 20180517
  59. LORATADINE. [Concomitant]
     Active Substance: LORATADINE
     Dosage: ANTI ALLERGY
     Route: 048
     Dates: start: 20180516, end: 20180522
  60. LORATADINE. [Concomitant]
     Active Substance: LORATADINE
     Route: 048
     Dates: start: 20180522
  61. ZELITREX [Concomitant]
     Active Substance: VALACYCLOVIR HYDROCHLORIDE
     Dosage: ANTI INFECTIVES
     Route: 048
     Dates: start: 20180515
  62. FOLINORAL [Concomitant]
     Active Substance: LEUCOVORIN CALCIUM
     Route: 048
     Dates: start: 20180517, end: 20180824
  63. CYCLOPHOSPHAMIDE. [Suspect]
     Active Substance: CYCLOPHOSPHAMIDE
     Indication: DIFFUSE LARGE B-CELL LYMPHOMA
     Dosage: DATE OF MOST RECENT DOSE 1475 MG OF CYCLOPHOSPHAMIDE PRIOR TO INTESTINAL PERFORATION: 30/MAY/2018 (1
     Route: 042
     Dates: start: 20180530
  64. PLACEBO [Suspect]
     Active Substance: UNSPECIFIED INGREDIENT
     Indication: DIFFUSE LARGE B-CELL LYMPHOMA
     Route: 042
     Dates: start: 20180530
  65. PANTOPRAZOLE [Concomitant]
     Active Substance: PANTOPRAZOLE
     Route: 048
     Dates: start: 20180809, end: 20180914
  66. SOLU?MEDROL [Concomitant]
     Active Substance: METHYLPREDNISOLONE SODIUM SUCCINATE
     Indication: LYMPHOMA
     Route: 042
     Dates: start: 20180518, end: 20180522
  67. SPASFON [PHLOROGLUCINOL;TRIMETHYLPHLOROGLUCINOL] [Concomitant]
     Active Substance: PHLOROGLUCINOL\1,3,5-TRIMETHOXYBENZENE
     Indication: ABDOMINAL PAIN
     Route: 042
     Dates: start: 20180531, end: 20180531
  68. TIENAM [Concomitant]
     Active Substance: CILASTATIN SODIUM\IMIPENEM
     Indication: ERYSIPELAS
     Dosage: 500/500 MG
     Route: 042
     Dates: start: 20180603, end: 20180618
  69. TIENAM [Concomitant]
     Active Substance: CILASTATIN SODIUM\IMIPENEM
     Route: 042
     Dates: start: 20180914, end: 20180920
  70. INNOHEP [Concomitant]
     Active Substance: TINZAPARIN SODIUM
     Route: 058
     Dates: start: 20180607, end: 20180805
  71. BISOPROLOL [Concomitant]
     Active Substance: BISOPROLOL
     Indication: ATRIAL FIBRILLATION
     Route: 048
     Dates: start: 20180529, end: 20180531
  72. AMIKACINE [AMIKACIN] [Concomitant]
     Active Substance: AMIKACIN
     Dosage: ANTI INFECTIVE?DROPS
     Route: 042
     Dates: start: 20180531, end: 20180531
  73. ACUPAN [Concomitant]
     Active Substance: NEFOPAM HYDROCHLORIDE
     Indication: PAIN
     Route: 042
     Dates: start: 20180603, end: 20180621
  74. PREDNISONE. [Suspect]
     Active Substance: PREDNISONE
     Indication: DIFFUSE LARGE B-CELL LYMPHOMA
     Dosage: DATE OF MOST RECENT DOSE 80 MG OF DOXORUBICIN PRIOR TO DIGESTIVE HEMORRHAGE: 22/MAY/2018 AND PRIOR T
     Route: 042
     Dates: start: 20180522
  75. PANTOPRAZOLE [Concomitant]
     Active Substance: PANTOPRAZOLE
     Route: 048
     Dates: start: 20180522, end: 20180531
  76. PREVISCAN [FLUINDIONE] [Concomitant]
     Active Substance: FLUINDIONE
     Indication: ATRIAL FIBRILLATION
     Route: 048
     Dates: end: 20180603
  77. TITANOREINE [CHONDRUS CRISPUS;LIDOCAINE;TITANIUM DIOXIDE;ZINC OXIDE] [Concomitant]
     Route: 054
     Dates: start: 20180515, end: 20180522
  78. BACTRIM [Concomitant]
     Active Substance: SULFAMETHOXAZOLE\TRIMETHOPRIM
     Dosage: ANTI INFECTIVE?800 UNIT UNKNOWN
     Route: 048
     Dates: start: 20180515, end: 20180603
  79. LASILIX [FUROSEMIDE] [Concomitant]
     Active Substance: FUROSEMIDE
     Route: 042
     Dates: start: 20180529, end: 20180530
  80. TRAMADOL. [Concomitant]
     Active Substance: TRAMADOL
     Indication: PAIN
     Route: 042
     Dates: start: 20180531, end: 20180531
  81. INNOHEP [Concomitant]
     Active Substance: TINZAPARIN SODIUM
     Route: 058
     Dates: start: 20180516, end: 20180522
  82. INNOHEP [Concomitant]
     Active Substance: TINZAPARIN SODIUM
     Route: 058
     Dates: start: 20180915, end: 201811
  83. PARACETAMOL [Concomitant]
     Active Substance: ACETAMINOPHEN
     Indication: PREMEDICATION
     Dosage: PREMEDICATION
     Route: 048
     Dates: start: 20180522, end: 20180921
  84. TAZOCILLINE [Concomitant]
     Active Substance: PIPERACILLIN SODIUM\TAZOBACTAM SODIUM
     Dosage: ANTI INFECTIVES
     Route: 042
     Dates: start: 20180528, end: 20180531
  85. MESNA. [Concomitant]
     Active Substance: MESNA
     Dosage: PREMEDICATINON, PROPHYLAXIS FOR HEMORRHAGIC CYSTITIS
     Route: 065
     Dates: start: 20180530, end: 20180921
  86. POLARAMINE [Concomitant]
     Active Substance: DEXCHLORPHENIRAMINE MALEATE
     Dosage: ANTI ALLERGY
     Route: 042
     Dates: start: 20180618, end: 20180711
  87. BETAMETHASONE. [Concomitant]
     Active Substance: BETAMETHASONE
     Indication: DRY SKIN
     Route: 061
     Dates: start: 20180618, end: 20180711
  88. AERIUS (DESLORATADINE) [Concomitant]
     Active Substance: DESLORATADINE
     Dosage: ANTI ALLERGY
     Route: 048
     Dates: start: 20180516, end: 20180522
  89. AERIUS (DESLORATADINE) [Concomitant]
     Active Substance: DESLORATADINE
     Route: 048
     Dates: start: 20180522, end: 20180921
  90. FOLINORAL [Concomitant]
     Active Substance: LEUCOVORIN CALCIUM
     Route: 048
     Dates: start: 20180920
  91. PRIMPERAN [Concomitant]
     Active Substance: METOCLOPRAMIDE HYDROCHLORIDE
     Route: 048
     Dates: start: 20180720, end: 20180728
  92. OROKEN [Concomitant]
     Active Substance: CEFIXIME
     Route: 048
     Dates: start: 20181025, end: 20181104
  93. DOXORUBICIN [Suspect]
     Active Substance: DOXORUBICIN
     Indication: DIFFUSE LARGE B-CELL LYMPHOMA
     Dosage: DATE OF MOST RECENT DOSE 99 MG OF DOXORUBICIN PRIOR TO INTESTINAL PERFORATION: 30/MAY/2018 99 MG AND
     Route: 042
     Dates: start: 20180530
  94. POLATUZUMAB VEDOTIN. [Suspect]
     Active Substance: POLATUZUMAB VEDOTIN
     Indication: DIFFUSE LARGE B-CELL LYMPHOMA
     Route: 042
     Dates: start: 20180530
  95. LASILIX [FUROSEMIDE] [Concomitant]
     Active Substance: FUROSEMIDE
     Route: 048
     Dates: start: 20180829, end: 20180829
  96. LASILIX [FUROSEMIDE] [Concomitant]
     Active Substance: FUROSEMIDE
     Route: 048
     Dates: start: 20180830, end: 20180904
  97. VANCOMYCINE [VANCOMYCIN] [Concomitant]
     Active Substance: VANCOMYCIN
     Dosage: ANTI INFECTIVE
     Route: 042
     Dates: start: 20180829, end: 20180829
  98. ISOFUNDINE [Concomitant]
     Active Substance: CALCIUM CHLORIDE\MAGNESIUM CHLORIDE\MALIC ACID\POTASSIUM CHLORIDE\SODIUM ACETATE\SODIUM CHLORIDE
     Route: 042
     Dates: start: 20180603, end: 20180606
  99. BISOPROLOL [Concomitant]
     Active Substance: BISOPROLOL
     Route: 048
     Dates: start: 20180604, end: 20180613
  100. LORATADINE. [Concomitant]
     Active Substance: LORATADINE
     Route: 048
     Dates: start: 20180621
  101. ATORVASTATINE [ATORVASTATIN] [Concomitant]
     Active Substance: ATORVASTATIN
     Indication: DYSLIPIDAEMIA
     Route: 048
     Dates: start: 20180517
  102. ALBUMINE [Concomitant]
     Active Substance: ALBUMIN HUMAN
     Dosage: INCREASE OF BLOOD VOLUME
     Route: 042
     Dates: start: 20180607, end: 20180611
  103. ACIDE FOLIQUE [Concomitant]
     Active Substance: FOLIC ACID
     Route: 048
     Dates: start: 20180515
  104. BINOCRIT [Concomitant]
     Active Substance: ERYTHROPOIETIN
     Indication: ANAEMIA
     Route: 058
     Dates: start: 20180720, end: 20181012
  105. BACTRIM [Concomitant]
     Active Substance: SULFAMETHOXAZOLE\TRIMETHOPRIM

REACTIONS (6)
  - Pulmonary embolism [Recovered/Resolved]
  - Gastrointestinal haemorrhage [Recovered/Resolved]
  - Hypovolaemia [Recovered/Resolved]
  - Gastrointestinal haemorrhage [Recovered/Resolved]
  - Intestinal perforation [Recovered/Resolved]
  - Infection [Recovered/Resolved]

NARRATIVE: CASE EVENT DATE: 20180522
